FAERS Safety Report 17421156 (Version 2)
Quarter: 2020Q1

REPORT INFORMATION
  Report Type: Spontaneous
  Country: FR (occurrence: FR)
  Receive Date: 20200214
  Receipt Date: 20200226
  Transmission Date: 20200409
  Serious: Yes (Death)
  Sender: FDA-Public Use
  Company Number: FR-B.I. PHARMACEUTICALS,INC./RIDGEFIELD-2020-12-007885

PATIENT
  Age: 35 Year
  Sex: Male
  Weight: 54 kg

DRUGS (3)
  1. OFEV [Suspect]
     Active Substance: NINTEDANIB
     Indication: PULMONARY FIBROSIS
     Route: 048
     Dates: start: 20191219, end: 20191231
  2. PIPERACILLINE / TAZOBACTAM MYLAN [Suspect]
     Active Substance: PIPERACILLIN SODIUM\TAZOBACTAM SODIUM
     Indication: INFECTION
     Route: 065
     Dates: start: 20191209
  3. BACTRIM [Suspect]
     Active Substance: SULFAMETHOXAZOLE\TRIMETHOPRIM
     Indication: INFECTION
     Route: 065
     Dates: start: 20191209

REACTIONS (2)
  - Rash morbilliform [Not Recovered/Not Resolved]
  - Acute respiratory distress syndrome [Fatal]

NARRATIVE: CASE EVENT DATE: 20191231
